FAERS Safety Report 9352040 (Version 1)
Quarter: 2013Q2

REPORT INFORMATION
  Report Type: Report from Study
  Country: BR (occurrence: BR)
  Receive Date: 20130617
  Receipt Date: 20130617
  Transmission Date: 20140414
  Serious: Yes (Hospitalization, Other)
  Sender: FDA-Public Use
  Company Number: PHHY2013BR059917

PATIENT
  Age: 80 Year
  Sex: Female
  Weight: 65 kg

DRUGS (6)
  1. EXELON PATCH [Suspect]
     Indication: TREMOR
     Dosage: 4.6 MG, DAILY
     Route: 062
     Dates: start: 20130521
  2. LOSARTAN [Concomitant]
     Dosage: 1 DRP, DAILY
     Dates: start: 20130520
  3. RISPERIDONE [Concomitant]
     Dosage: 0.5 DF, DAILY
     Dates: start: 20130520
  4. HYDROCHLOROTHIAZIDE [Concomitant]
     Dosage: UNK UKN, UNK
  5. DIGESAN [Concomitant]
     Indication: GASTRIC DISORDER
     Dosage: UNK UKN, UNK
     Dates: start: 20130523
  6. ALPRAZOLAM [Concomitant]
     Dosage: UNK UKN, UNK

REACTIONS (13)
  - Parkinson^s disease [Recovering/Resolving]
  - Tremor [Recovering/Resolving]
  - Muscle rigidity [Recovering/Resolving]
  - Incoherent [Recovering/Resolving]
  - Wound [Recovering/Resolving]
  - Nasopharyngitis [Recovering/Resolving]
  - Haematoma [Recovering/Resolving]
  - Blood pressure decreased [Recovering/Resolving]
  - Blood glucose increased [Recovering/Resolving]
  - Syncope [Recovering/Resolving]
  - Convulsion [Recovering/Resolving]
  - Dizziness [Recovering/Resolving]
  - Malaise [Recovering/Resolving]
